FAERS Safety Report 8496192 (Version 6)
Quarter: 2013Q3

REPORT INFORMATION
  Report Type: Spontaneous
  Country: US (occurrence: US)
  Receive Date: 20120405
  Receipt Date: 20130815
  Transmission Date: 20140515
  Serious: Yes (Hospitalization)
  Sender: FDA-Public Use
  Company Number: US-GLAXOSMITHKLINE-A0972238A

PATIENT
  Age: 38 Year
  Sex: Female

DRUGS (2)
  1. FLOLAN [Suspect]
     Indication: PULMONARY ARTERIAL HYPERTENSION
     Dosage: 36NGKM SEE DOSAGE TEXT
     Route: 042
     Dates: start: 19991004
  2. COUMADIN [Concomitant]
     Dosage: 4MG PER DAY
     Route: 065

REACTIONS (7)
  - Failure to thrive [Not Recovered/Not Resolved]
  - Gastrointestinal haemorrhage [Unknown]
  - Abdominal symptom [Unknown]
  - Blood glucose decreased [Unknown]
  - Hypotension [Unknown]
  - Pneumonia aspiration [Unknown]
  - Mental status changes [Unknown]
